FAERS Safety Report 13725991 (Version 5)
Quarter: 2017Q4

REPORT INFORMATION
  Report Type: Report from Study
  Country: CA (occurrence: CA)
  Receive Date: 20170707
  Receipt Date: 20171009
  Transmission Date: 20180320
  Serious: Yes (Other)
  Sender: FDA-Public Use
  Company Number: CA-GLAXOSMITHKLINE-CA2017GSK103261

PATIENT
  Age: 63 Year
  Sex: Male

DRUGS (4)
  1. VENTOLIN [Suspect]
     Active Substance: ALBUTEROL SULFATE
     Indication: PRODUCT USED FOR UNKNOWN INDICATION
     Dosage: 2 PUFF(S), UNK
  2. MEPOLIZUMAB [Suspect]
     Active Substance: MEPOLIZUMAB
     Indication: ASTHMA
     Dosage: 100 MG, Z (MONTHLY)
  3. MEPOLIZUMAB [Suspect]
     Active Substance: MEPOLIZUMAB
     Dosage: 100 MG, Z
  4. MEPOLIZUMAB [Suspect]
     Active Substance: MEPOLIZUMAB
     Dosage: 100 MG, UNK
     Dates: start: 20170829

REACTIONS (19)
  - Feeling cold [Unknown]
  - Wheezing [Unknown]
  - Breath sounds abnormal [Unknown]
  - Pyrexia [Recovered/Resolved]
  - Pallor [Unknown]
  - Cough [Unknown]
  - Parkinson^s disease [Unknown]
  - Pain [Unknown]
  - Dyspnoea [Recovered/Resolved]
  - Headache [Recovered/Resolved]
  - Nasopharyngitis [Unknown]
  - Hypopnoea [Unknown]
  - Stridor [Recovered/Resolved]
  - Rhinorrhoea [Unknown]
  - Drug ineffective [Unknown]
  - Pneumonia [Unknown]
  - Fatigue [Unknown]
  - Respiratory rate increased [Unknown]
  - Discomfort [Unknown]

NARRATIVE: CASE EVENT DATE: 20170509
